FAERS Safety Report 23301892 (Version 3)
Quarter: 2024Q1

REPORT INFORMATION
  Report Type: Spontaneous
  Country: US (occurrence: None)
  Receive Date: 20231215
  Receipt Date: 20240307
  Transmission Date: 20240409
  Serious: No
  Sender: FDA-Public Use
  Company Number: 2023A280747

PATIENT
  Age: 95 Year
  Sex: Female

DRUGS (2)
  1. FARXIGA [Suspect]
     Active Substance: DAPAGLIFLOZIN PROPANEDIOL
     Indication: Cardiac failure
     Route: 048
  2. TOLVAPTAN [Suspect]
     Active Substance: TOLVAPTAN

REACTIONS (1)
  - Hyponatraemia [Unknown]
